FAERS Safety Report 12821187 (Version 1)
Quarter: 2016Q4

REPORT INFORMATION
  Report Type: Spontaneous
  Country: US (occurrence: US)
  Receive Date: 20161007
  Receipt Date: 20161007
  Transmission Date: 20170207
  Serious: Yes (Other)
  Sender: FDA-Public Use
  Company Number: US-RELYPSA-RLY2016002774

PATIENT
  Age: 62 Year
  Sex: Female

DRUGS (10)
  1. CLONIDINE. [Concomitant]
     Active Substance: CLONIDINE
     Dosage: 0.1 MG, UNKNOWN
  2. FERROUS SULFATE. [Concomitant]
     Active Substance: FERROUS SULFATE
     Dosage: 325 MG, QD
  3. LEVOTHYROXINE. [Concomitant]
     Active Substance: LEVOTHYROXINE
     Dosage: 75 MCG, QD
  4. ROSUVASTATIN. [Concomitant]
     Active Substance: ROSUVASTATIN
     Dosage: 5 MG, QD
  5. ASPIRIN. [Concomitant]
     Active Substance: ASPIRIN
     Dosage: 81 MG, UNKNOWN
  6. VELTASSA [Suspect]
     Active Substance: PATIROMER
     Indication: PRODUCT USED FOR UNKNOWN INDICATION
     Dosage: 8.4 G, QD
     Route: 048
     Dates: start: 20160924, end: 20160926
  7. KIONEX [Concomitant]
     Active Substance: SODIUM POLYSTYRENE SULFONATE
     Indication: BLOOD POTASSIUM INCREASED
     Dosage: ^4 BOTTLES^
     Dates: start: 201609, end: 201609
  8. COQ10 [Concomitant]
     Active Substance: UBIDECARENONE
     Dosage: 100 MG, QD
  9. NOVOLOG [Concomitant]
     Active Substance: INSULIN ASPART
     Dosage: UNK, PRN
  10. PROPANOLOL [Concomitant]
     Active Substance: PROPRANOLOL HYDROCHLORIDE
     Dosage: 40 MG, TID

REACTIONS (5)
  - Hypertension [Recovering/Resolving]
  - Muscular weakness [Unknown]
  - Headache [Not Recovered/Not Resolved]
  - Constipation [Not Recovered/Not Resolved]
  - Drug dose omission [Unknown]

NARRATIVE: CASE EVENT DATE: 20160925
